FAERS Safety Report 12237031 (Version 1)
Quarter: 2016Q2

REPORT INFORMATION
  Report Type: Spontaneous
  Country: US (occurrence: None)
  Receive Date: 20160404
  Receipt Date: 20160404
  Transmission Date: 20160815
  Serious: No
  Sender: FDA-Public Use
  Company Number: None

PATIENT
  Age: 45 Year
  Sex: Male
  Weight: 80.4 kg

DRUGS (2)
  1. VEDOLIZUMAB [Concomitant]
     Active Substance: VEDOLIZUMAB
     Dates: start: 20160115, end: 20160203
  2. ADALIMUMAB [Suspect]
     Active Substance: ADALIMUMAB
     Indication: CROHN^S DISEASE
     Route: 058
     Dates: start: 20141215, end: 20151230

REACTIONS (5)
  - Crohn^s disease [None]
  - Dermatitis psoriasiform [None]
  - Rash [None]
  - Pruritus [None]
  - Eczema nummular [None]

NARRATIVE: CASE EVENT DATE: 20160126
